FAERS Safety Report 14712478 (Version 2)
Quarter: 2018Q2

REPORT INFORMATION
  Report Type: Report from Study
  Country: NL (occurrence: NL)
  Receive Date: 20180404
  Receipt Date: 20180531
  Transmission Date: 20180711
  Serious: Yes (Hospitalization)
  Sender: FDA-Public Use
  Company Number: NL-ROCHE-2095706

PATIENT
  Age: 73 Year

DRUGS (5)
  1. IRINOTECAN [Suspect]
     Active Substance: IRINOTECAN
     Indication: COLORECTAL CANCER METASTATIC
     Dosage: DOSE AND FREQUENCY AS PER PROTOCOL?DATE OF LAST DOSE PRIOR TO SAE: 24/NOV/2017
     Route: 065
     Dates: start: 20170922
  2. BEVACIZUMAB. [Suspect]
     Active Substance: BEVACIZUMAB
     Indication: COLORECTAL CANCER METASTATIC
     Dosage: DOSE AND FREQUENCY AS PER PROTOCOL?DATE OF LAST DOSE PRIOR TO SAE: 24/DEC/2017
     Route: 065
     Dates: start: 20170922
  3. LEUCOVORIN. [Suspect]
     Active Substance: LEUCOVORIN
     Indication: COLORECTAL CANCER METASTATIC
     Dosage: DOSE AND FREQUENCY AS PER PROTOCOL?DATE OF LAST DOSE PRIOR TO SAE: 24/DEC/2017
     Route: 065
     Dates: start: 20170922
  4. FLUOROURACIL. [Suspect]
     Active Substance: FLUOROURACIL
     Indication: COLORECTAL CANCER METASTATIC
     Dosage: DOSE AND FREQUENCY AS PER PROTOCOL?DATE OF LAST DOSE PRIOR TO SAE: 24/DEC/2017
     Route: 065
     Dates: start: 20170922
  5. FLUOROURACIL. [Suspect]
     Active Substance: FLUOROURACIL
     Dosage: DOSE AND FREQUENCY AS PER PROTOCOL?DATE OF LAST DOSE PRIOR TO SAE: 24/DEC/2017
     Route: 065
     Dates: start: 20170922

REACTIONS (3)
  - Deep vein thrombosis [Recovered/Resolved]
  - Hydronephrosis [Recovered/Resolved]
  - Pyelonephritis [Recovered/Resolved]

NARRATIVE: CASE EVENT DATE: 20180306
